FAERS Safety Report 10191598 (Version 1)
Quarter: 2014Q2

REPORT INFORMATION
  Report Type: Spontaneous
  Country: CN (occurrence: CN)
  Receive Date: 20140523
  Receipt Date: 20140523
  Transmission Date: 20141212
  Serious: Yes (Other)
  Sender: FDA-Public Use
  Company Number: CN-PFIZER INC-2014138270

PATIENT
  Age: 48 Year
  Sex: Female
  Weight: 58 kg

DRUGS (2)
  1. PHARMORUBICIN [Suspect]
     Indication: BREAST CANCER
     Dosage: 90 UG/M2, 1X/DAY
     Route: 041
     Dates: start: 20130305, end: 20130315
  2. ANZATAX [Suspect]
     Indication: BREAST CANCER
     Dosage: 175 MG/M2, 1X/DAY
     Route: 041
     Dates: start: 20130305, end: 20130315

REACTIONS (3)
  - Bone marrow failure [Recovering/Resolving]
  - Asthenia [Recovering/Resolving]
  - Bone pain [Recovering/Resolving]
